FAERS Safety Report 8501822-8 (Version None)
Quarter: 2012Q3

REPORT INFORMATION
  Report Type: 
  Country: None (occurrence: None)
  Receive Date: 20120705
  Receipt Date: 20120705
  Transmission Date: 20120928
  Serious: Yes (Death)
  Sender: FDA-Public Use
  Company Number: None

PATIENT
  Age: 75 Year
  Sex: Male
  Weight: 105.2 kg

DRUGS (2)
  1. ENOXAPARIN [Suspect]
  2. EDWARDS MAGNA PERICARDIAL VALVE [Concomitant]

REACTIONS (1)
  - HAEMORRHAGIC STROKE [None]
